FAERS Safety Report 20097904 (Version 1)
Quarter: 2021Q4

REPORT INFORMATION
  Report Type: Spontaneous
  Country: AU (occurrence: AU)
  Receive Date: 20211122
  Receipt Date: 20211122
  Transmission Date: 20220303
  Serious: Yes (Other)
  Sender: FDA-Public Use
  Company Number: AU-COLLEGIUM PHARMACEUTICAL, INC.-2021CGM01216

PATIENT
  Sex: Male

DRUGS (3)
  1. TAPENTADOL [Suspect]
     Active Substance: TAPENTADOL
     Indication: Product used for unknown indication
     Dosage: 50 MG
  2. TAPENTADOL [Suspect]
     Active Substance: TAPENTADOL
     Dosage: 100 MG
  3. TAPENTADOL [Suspect]
     Active Substance: TAPENTADOL
     Dosage: 150 MG

REACTIONS (5)
  - Weight decreased [Unknown]
  - Drug tolerance [Unknown]
  - Decreased appetite [Unknown]
  - Therapeutic product effect decreased [Unknown]
  - Drug dependence [Unknown]
